FAERS Safety Report 9203169 (Version 1)
Quarter: 2013Q1

REPORT INFORMATION
  Report Type: Spontaneous
  Country: US (occurrence: None)
  Receive Date: 20120709
  Receipt Date: 20120709
  Transmission Date: 20140127
  Serious: Yes (Hospitalization, Other)
  Sender: FDA-Public Use
  Company Number: PHHY2010US78727

PATIENT
  Age: 69 Year
  Sex: Male
  Weight: 94 kg

DRUGS (7)
  1. GLEEVEC (IMATINIB) UNKNOWN [Suspect]
     Indication: GASTRIC CANCER
     Route: 048
     Dates: start: 20101011
  2. GLEEVEC (IMATINIB) UNKNOWN [Suspect]
     Indication: GASTROINTESTINAL STROMAL TUMOUR
     Route: 048
     Dates: start: 20101011
  3. DONEPEZIL (DONEPEZIL) [Concomitant]
  4. AMLODIPINE (AMLODIPINE) [Concomitant]
  5. METOPROLOL (METOPROLOL) [Concomitant]
  6. LANTUS (INSULIN GLARGINE) [Concomitant]
  7. CRESTOR (ROSUVASTATIN CALCIUM) [Concomitant]

REACTIONS (2)
  - Pneumonia [None]
  - Pulmonary mass [None]
